FAERS Safety Report 20429530 (Version 1)
Quarter: 2022Q1

REPORT INFORMATION
  Report Type: Report from Study
  Country: FR (occurrence: FR)
  Receive Date: 20220204
  Receipt Date: 20220204
  Transmission Date: 20220423
  Serious: Yes (Other)
  Sender: FDA-Public Use
  Company Number: FR-SHIRE-FR201844596

PATIENT

DRUGS (12)
  1. ONCASPAR [Suspect]
     Active Substance: PEGASPARGASE
     Indication: Acute lymphocytic leukaemia
     Dosage: 1250 IU
     Route: 042
     Dates: start: 20181008, end: 20181008
  2. VINCRISTINE [Suspect]
     Active Substance: VINCRISTINE
     Indication: Acute lymphocytic leukaemia
     Dosage: 0.8 MG, (D 8, D15, D22, D29)
     Route: 042
     Dates: start: 20181004, end: 20181025
  3. METHOTREXATE [Suspect]
     Active Substance: METHOTREXATE
     Indication: Acute lymphocytic leukaemia
     Dosage: 10 MG, (D1, D13, D24)
     Route: 037
     Dates: start: 20180927, end: 20181020
  4. DEXAMETHASONE [Suspect]
     Active Substance: DEXAMETHASONE
     Indication: Acute lymphocytic leukaemia
     Dosage: 3 MG, D8 TO D28
     Route: 048
     Dates: start: 20181004, end: 20181024
  5. DEXAMETHASONE [Suspect]
     Active Substance: DEXAMETHASONE
     Dosage: 2 MG, D29 TO D30
     Route: 048
     Dates: start: 20181025, end: 20181026
  6. DEXAMETHASONE [Suspect]
     Active Substance: DEXAMETHASONE
     Dosage: 1 MG, D31 TO 32
     Route: 048
     Dates: start: 20181027, end: 20181029
  7. DEXAMETHASONE [Suspect]
     Active Substance: DEXAMETHASONE
     Dosage: 0.5 MG, D34
     Route: 048
     Dates: start: 20181030
  8. TN UNSPECIFIED [Concomitant]
     Indication: Acute lymphocytic leukaemia
     Dosage: 30 MG, DAY 2 TO DAY 7
     Route: 048
     Dates: start: 20180928, end: 20181003
  9. TN UNSPECIFIED [Concomitant]
     Indication: Acute lymphocytic leukaemia
     Dosage: 30 MG DAY 1
     Route: 042
     Dates: start: 20180927, end: 20180927
  10. TN UNSPECIFIED [Concomitant]
     Indication: Prophylaxis
     Dosage: 5.1 ML
     Route: 048
     Dates: start: 20181003
  11. BACTRIM [Concomitant]
     Active Substance: SULFAMETHOXAZOLE\TRIMETHOPRIM
     Indication: Prophylaxis
     Dosage: 300 MG
     Route: 048
     Dates: start: 20181003
  12. TN UNSPECIFIED [Concomitant]
     Indication: Infection
     Dosage: 3300 MG
     Route: 042
     Dates: start: 20181002

REACTIONS (2)
  - Hypertriglyceridaemia [Recovered/Resolved]
  - Hyperlipidaemia [Recovered/Resolved]

NARRATIVE: CASE EVENT DATE: 20181030
